FAERS Safety Report 16039293 (Version 1)
Quarter: 2019Q1

REPORT INFORMATION
  Report Type: Spontaneous
  Country: US (occurrence: US)
  Receive Date: 20190306
  Receipt Date: 20190306
  Transmission Date: 20190418
  Serious: No
  Sender: FDA-Public Use
  Company Number: US-SUN PHARMACEUTICAL INDUSTRIES LTD-2018R1-194908

PATIENT
  Sex: Female

DRUGS (1)
  1. CLINDAMYCIN. [Suspect]
     Active Substance: CLINDAMYCIN
     Indication: PRODUCT USED FOR UNKNOWN INDICATION
     Dosage: UNKNOWN
     Route: 065

REACTIONS (3)
  - Headache [Unknown]
  - Abdominal pain upper [Unknown]
  - Lethargy [Unknown]

NARRATIVE: CASE EVENT DATE: 2018
